FAERS Safety Report 19132665 (Version 3)
Quarter: 2021Q2

REPORT INFORMATION
  Report Type: Spontaneous
  Country: JP (occurrence: JP)
  Receive Date: 20210413
  Receipt Date: 20210604
  Transmission Date: 20210717
  Serious: Yes (Hospitalization, Other)
  Sender: FDA-Public Use
  Company Number: JP-009507513-2104JPN002411

PATIENT
  Age: 83 Year
  Sex: Male
  Weight: 88 kg

DRUGS (7)
  1. GLACTIV [Suspect]
     Active Substance: SITAGLIPTIN
     Indication: TYPE 2 DIABETES MELLITUS
     Dosage: 25 MG, EVERYDAY
     Route: 048
  2. OPDIVO [Suspect]
     Active Substance: NIVOLUMAB
     Indication: METASTATIC RENAL CELL CARCINOMA
     Dosage: UNK
     Route: 041
  3. GLIMEPIRIDE. [Concomitant]
     Active Substance: GLIMEPIRIDE
     Dosage: 1 MG, EVERYDAY
     Route: 048
  4. TERNELIN [Concomitant]
     Active Substance: TIZANIDINE
     Dosage: 1 MG, EVERYDAY
     Route: 048
  5. TELTHIA [Concomitant]
     Dosage: 1 DF, EVERYDAY
     Route: 048
  6. METHYCOBAL [Concomitant]
     Active Substance: METHYLCOBALAMIN
     Dosage: 500 UG, Q8H
     Route: 048
  7. TAKECAB [Concomitant]
     Active Substance: VONOPRAZAN FUMARATE
     Dosage: 20 MG, EVERYDAY
     Route: 048

REACTIONS (6)
  - Gastritis erosive [Unknown]
  - Pyrexia [Recovering/Resolving]
  - Large intestine perforation [Recovered/Resolved]
  - Diarrhoea [Unknown]
  - Colitis [Unknown]
  - Salmonella test positive [Unknown]

NARRATIVE: CASE EVENT DATE: 20201106
